FAERS Safety Report 13301572 (Version 1)
Quarter: 2017Q1

REPORT INFORMATION
  Report Type: Spontaneous
  Country: NO (occurrence: NO)
  Receive Date: 20170307
  Receipt Date: 20170307
  Transmission Date: 20170428
  Serious: Yes (Hospitalization, Disabling)
  Sender: FDA-Public Use
  Company Number: NO-TEVA-743705ACC

PATIENT
  Age: 40 Year
  Sex: Male
  Weight: 80 kg

DRUGS (3)
  1. SAW PALMETTO [Concomitant]
     Active Substance: SAW PALMETTO
     Dosage: DIETARY SUPPLEMENT WITH SAW PALMETTO
  2. LEVAXIN [Concomitant]
     Active Substance: LEVOTHYROXINE SODIUM
     Indication: HYPOTHYROIDISM
     Dates: start: 20100101
  3. FINASTERIDE ACTAVIS [Suspect]
     Active Substance: FINASTERIDE
     Indication: ALOPECIA
     Dosage: 5 MILLIGRAM DAILY;
     Dates: start: 20130125, end: 20130828

REACTIONS (7)
  - Tinnitus [Recovering/Resolving]
  - Condition aggravated [Recovered/Resolved]
  - Penile size reduced [Recovering/Resolving]
  - Headache [Recovering/Resolving]
  - Paraesthesia [Recovering/Resolving]
  - Vitiligo [Unknown]
  - Lid sulcus deepened [Not Recovered/Not Resolved]

NARRATIVE: CASE EVENT DATE: 20130501
